FAERS Safety Report 5083822-6 (Version None)
Quarter: 2006Q3

REPORT INFORMATION
  Report Type: 
  Country: None (occurrence: None)
  Receive Date: 20060818
  Receipt Date: 20060612
  Transmission Date: 20061208
  Serious: Yes (Congenital Anomaly)
  Sender: FDA-Public Use
  Company Number: US-GILEAD-2006-0009729

PATIENT
  Sex: Male

DRUGS (10)
  1. VIREAD [Suspect]
     Route: 064
     Dates: end: 20060315
  2. VIREAD [Suspect]
     Route: 064
     Dates: end: 20060222
  3. EPIVIR [Concomitant]
     Route: 064
     Dates: end: 20060315
  4. EPIVIR [Concomitant]
     Route: 064
     Dates: end: 20060222
  5. REYATAZ [Concomitant]
     Indication: HIV INFECTION
     Route: 064
     Dates: end: 20060315
  6. REYATAZ [Concomitant]
     Route: 064
     Dates: end: 20060222
  7. XANAX [Concomitant]
     Route: 064
  8. ZOLOFT [Concomitant]
     Route: 064
  9. PERCOCET [Concomitant]
     Route: 064
  10. IMPRAMINE HCL [Concomitant]
     Route: 064

REACTIONS (6)
  - ABORTION INDUCED [None]
  - CONGENITAL GASTRIC ANOMALY [None]
  - DRUG EXPOSURE DURING PREGNANCY [None]
  - HYDROCEPHALUS [None]
  - TALIPES [None]
  - UMBILICAL CORD ABNORMALITY [None]
